FAERS Safety Report 15855657 (Version 3)
Quarter: 2019Q2

REPORT INFORMATION
  Report Type: Spontaneous
  Country: US (occurrence: US)
  Receive Date: 20190122
  Receipt Date: 20190606
  Transmission Date: 20190711
  Serious: Yes (Hospitalization, Other)
  Sender: FDA-Public Use
  Company Number: US-ACTELION-A-NJ2019-185235

PATIENT
  Age: 45 Year
  Sex: Female
  Weight: 107.48 kg

DRUGS (3)
  1. OPSUMIT [Suspect]
     Active Substance: MACITENTAN
     Indication: PULMONARY ARTERIAL HYPERTENSION
     Dosage: 10 MG, QD
     Route: 048
     Dates: start: 20180726
  2. VELETRI [Suspect]
     Active Substance: EPOPROSTENOL
     Indication: PULMONARY ARTERIAL HYPERTENSION
     Dosage: 29 NG/KG, PER MIN
     Route: 042
  3. ELIQUIS [Concomitant]
     Active Substance: APIXABAN

REACTIONS (12)
  - Pneumonia [Unknown]
  - Aspartate aminotransferase increased [Unknown]
  - Blood alkaline phosphatase increased [Unknown]
  - Pancreatitis acute [Recovered/Resolved with Sequelae]
  - Hypotension [Recovered/Resolved with Sequelae]
  - Cholelithiasis [Recovered/Resolved with Sequelae]
  - Blood bilirubin increased [Unknown]
  - Pyrexia [Recovered/Resolved with Sequelae]
  - Alanine aminotransferase increased [Unknown]
  - Liver function test increased [Unknown]
  - Septic shock [Recovered/Resolved with Sequelae]
  - Lipase increased [Unknown]

NARRATIVE: CASE EVENT DATE: 20190112
